FAERS Safety Report 12689164 (Version 2)
Quarter: 2017Q4

REPORT INFORMATION
  Report Type: Spontaneous
  Country: US (occurrence: US)
  Receive Date: 20160826
  Receipt Date: 20171219
  Transmission Date: 20180320
  Serious: No
  Sender: FDA-Public Use
  Company Number: US-LUNDBECK-DKLU2017727

PATIENT
  Age: 42 Year
  Sex: Female

DRUGS (3)
  1. NORTHERA [Suspect]
     Active Substance: DROXIDOPA
     Indication: ORTHOSTATIC HYPOTENSION
     Dosage: TITRATION SCHEDULE C (TITRATING)
     Route: 048
     Dates: start: 20160726
  2. NORTHERA [Suspect]
     Active Substance: DROXIDOPA
     Route: 048
  3. NORTHERA [Suspect]
     Active Substance: DROXIDOPA
     Route: 048
     Dates: start: 20160801

REACTIONS (4)
  - Headache [Unknown]
  - Blood pressure fluctuation [Unknown]
  - Dizziness [Unknown]
  - Dizziness [Unknown]

NARRATIVE: CASE EVENT DATE: 20160726
